FAERS Safety Report 26205612 (Version 1)
Quarter: 2025Q4

REPORT INFORMATION
  Report Type: Spontaneous
  Country: IN (occurrence: None)
  Receive Date: 20251228
  Receipt Date: 20251228
  Transmission Date: 20260117
  Serious: Yes (Death)
  Sender: ENCUBE ETHICALS PVT. LTD.
  Company Number: IN-Encube-002740

PATIENT
  Age: 2 Year
  Sex: Female

DRUGS (1)
  1. METRONIDAZOLE [Suspect]
     Active Substance: METRONIDAZOLE
     Indication: Gastroenteritis

REACTIONS (3)
  - Drug-induced liver injury [Fatal]
  - Off label use [Unknown]
  - Acute hepatic failure [Fatal]
